FAERS Safety Report 10300804 (Version 1)
Quarter: 2014Q3

REPORT INFORMATION
  Report Type: Spontaneous
  Country: US (occurrence: None)
  Receive Date: 20140708
  Receipt Date: 20140708
  Transmission Date: 20150326
  Serious: Yes (Other)
  Sender: FDA-Public Use
  Company Number: US-000996

PATIENT
  Age: 62 Year
  Sex: Female

DRUGS (16)
  1. GATTEX [Suspect]
     Active Substance: TEDUGLUTIDE\WATER
     Indication: SHORT-BOWEL SYNDROME
     Dosage: (0.21 ML, QD, STREN/VOLUME: 0.21 ML|FREQU: ONCE A DAY SUBCUTANEOUS)
     Route: 058
     Dates: start: 20140403
  2. IMURAN [Concomitant]
     Active Substance: AZATHIOPRINE
  3. IMODIUM [Concomitant]
     Active Substance: LOPERAMIDE HYDROCHLORIDE
  4. NEXIUM [Concomitant]
     Active Substance: ESOMEPRAZOLE MAGNESIUM
  5. MULTIVITAMIN [Concomitant]
     Active Substance: VITAMINS
  6. CAMPHORATED TINCTURE OF OPIUM [Concomitant]
  7. ESTRADIOL. [Concomitant]
     Active Substance: ESTRADIOL
  8. POTASSIUM CHLORIDE. [Concomitant]
     Active Substance: POTASSIUM CHLORIDE
  9. RESTASIS [Concomitant]
     Active Substance: CYCLOSPORINE
  10. VITAMIN B12 [Concomitant]
     Active Substance: CYANOCOBALAMIN
  11. NORMAL SALINE [Concomitant]
     Active Substance: SODIUM CHLORIDE
  12. NORDAL [Concomitant]
  13. ENALAPRIL [Concomitant]
     Active Substance: ENALAPRIL
  14. PROMETHAZINE [Concomitant]
     Active Substance: PROMETHAZINE\PROMETHAZINE HYDROCHLORIDE
  15. VIVELLE [Concomitant]
     Active Substance: ESTRADIOL
  16. ABTEI MAGNESIUM [Concomitant]

REACTIONS (5)
  - Diarrhoea [None]
  - Gastrointestinal stoma complication [None]
  - Abdominal distension [None]
  - Abdominal pain [None]
  - Nausea [None]

NARRATIVE: CASE EVENT DATE: 20140404
